FAERS Safety Report 11289403 (Version 2)
Quarter: 2015Q3

REPORT INFORMATION
  Report Type: Spontaneous
  Country: NZ (occurrence: NZ)
  Receive Date: 20150721
  Receipt Date: 20150805
  Transmission Date: 20151125
  Serious: Yes (Life-Threatening, Hospitalization)
  Sender: FDA-Public Use
  Company Number: NZ-B.I. PHARMACEUTICALS,INC./RIDGEFIELD-2015-BI-38090AU

PATIENT
  Age: 26 Year
  Sex: Male
  Weight: 122 kg

DRUGS (1)
  1. PRADAXA [Suspect]
     Active Substance: DABIGATRAN ETEXILATE MESYLATE
     Indication: THROMBOSIS PROPHYLAXIS
     Dosage: 300 MG
     Route: 065
     Dates: start: 20150209, end: 20150525

REACTIONS (4)
  - Mouth haemorrhage [Unknown]
  - Mouth haemorrhage [Recovered/Resolved with Sequelae]
  - Arteriovenous malformation [Unknown]
  - Coagulopathy [Unknown]

NARRATIVE: CASE EVENT DATE: 20150525
